FAERS Safety Report 8002719-2 (Version None)
Quarter: 2011Q4

REPORT INFORMATION
  Report Type: 
  Country: None (occurrence: None)
  Receive Date: 20111222
  Receipt Date: 20111215
  Transmission Date: 20120403
  Serious: Yes (Death, Hospitalization)
  Sender: FDA-Public Use
  Company Number: IT-ELI_LILLY_AND_COMPANY-IT201112000853

PATIENT
  Sex: Male

DRUGS (2)
  1. CARBOPLATIN [Concomitant]
     Dosage: 800 MG, EVERY 3 WEEKS
     Route: 042
     Dates: start: 20110606, end: 20110928
  2. ALIMTA [Suspect]
     Indication: LUNG ADENOCARCINOMA
     Dosage: 950 MG/CYCLE, EVERY 3 WEEKS
     Route: 042
     Dates: start: 20110606, end: 20110928

REACTIONS (7)
  - RENAL FAILURE [None]
  - PULMONARY OEDEMA [None]
  - DEATH [None]
  - LEUKOPENIA [None]
  - DIARRHOEA [None]
  - ELECTROLYTE IMBALANCE [None]
  - THROMBOCYTOPENIA [None]
